FAERS Safety Report 21962791 (Version 2)
Quarter: 2023Q1

REPORT INFORMATION
  Report Type: Spontaneous
  Country: US (occurrence: US)
  Receive Date: 20230207
  Receipt Date: 20230315
  Transmission Date: 20230418
  Serious: No
  Sender: FDA-Public Use
  Company Number: US-PFIZER INC-202300051767

PATIENT
  Age: 65 Year
  Sex: Female
  Weight: 76.19 kg

DRUGS (1)
  1. PREMPRO [Suspect]
     Active Substance: ESTROGENS, CONJUGATED\MEDROXYPROGESTERONE ACETATE
     Indication: Hormone level abnormal
     Dosage: 1 DF, DAILY (0.3MG/1.5MG; TAKES ONE TABLET DAILY)
     Dates: start: 2012

REACTIONS (2)
  - Body height decreased [Unknown]
  - Overweight [Unknown]
